FAERS Safety Report 17520426 (Version 1)
Quarter: 2020Q1

REPORT INFORMATION
  Report Type: Spontaneous
  Country: MX (occurrence: MX)
  Receive Date: 20200309
  Receipt Date: 20200309
  Transmission Date: 20200409
  Serious: Yes (Hospitalization)
  Sender: FDA-Public Use
  Company Number: MX-B.I. PHARMACEUTICALS,INC./RIDGEFIELD-2020-BI-013416

PATIENT
  Age: 77 Year
  Sex: Female

DRUGS (4)
  1. PRADAXAR [Suspect]
     Active Substance: DABIGATRAN ETEXILATE MESYLATE
     Indication: ANTICOAGULANT THERAPY
     Route: 065
     Dates: start: 202001
  2. PRADAXAR [Suspect]
     Active Substance: DABIGATRAN ETEXILATE MESYLATE
     Route: 065
  3. PRADAXAR [Suspect]
     Active Substance: DABIGATRAN ETEXILATE MESYLATE
     Route: 065
  4. METFORMIN [Concomitant]
     Active Substance: METFORMIN HYDROCHLORIDE
     Indication: PRODUCT USED FOR UNKNOWN INDICATION
     Route: 065

REACTIONS (6)
  - Cerebral haemorrhage [Unknown]
  - Thrombosis [Unknown]
  - Fall [Unknown]
  - Head injury [Unknown]
  - Hypertension [Unknown]
  - Epistaxis [Unknown]

NARRATIVE: CASE EVENT DATE: 202002
